FAERS Safety Report 9387851 (Version 1)
Quarter: 2013Q3

REPORT INFORMATION
  Report Type: Spontaneous
  Country: CA (occurrence: CA)
  Receive Date: 20130708
  Receipt Date: 20130708
  Transmission Date: 20140515
  Serious: Yes (Death)
  Sender: FDA-Public Use
  Company Number: CA-CELGENEUS-028-20785-13054759

PATIENT
  Age: 70 Year
  Sex: Female

DRUGS (2)
  1. THALOMID [Suspect]
     Indication: PLASMA CELL MYELOMA
     Route: 048
     Dates: start: 201107
  2. THALOMID [Suspect]
     Route: 048
     Dates: start: 201211, end: 201305

REACTIONS (1)
  - Plasma cell myeloma [Fatal]
